FAERS Safety Report 7967544-7 (Version None)
Quarter: 2011Q4

REPORT INFORMATION
  Report Type: 
  Country: None (occurrence: None)
  Receive Date: 20111209
  Receipt Date: 20111129
  Transmission Date: 20120403
  Serious: Yes (Hospitalization)
  Sender: FDA-Public Use
  Company Number: US-JNJFOC-NSADSS2001027692

PATIENT
  Sex: Female

DRUGS (2)
  1. REMICADE [Suspect]
     Indication: RHEUMATOID ARTHRITIS
     Route: 041
     Dates: start: 20010901, end: 20010901
  2. REMICADE [Suspect]
     Indication: CONNECTIVE TISSUE DISORDER
     Route: 041
     Dates: start: 20010901, end: 20010901

REACTIONS (2)
  - RESPIRATORY FAILURE [None]
  - PNEUMONIA LEGIONELLA [None]
